FAERS Safety Report 10364812 (Version 3)
Quarter: 2014Q4

REPORT INFORMATION
  Report Type: Report from Study
  Country: GB (occurrence: GB)
  Receive Date: 20140806
  Receipt Date: 20141014
  Transmission Date: 20150528
  Serious: Yes (Hospitalization)
  Sender: FDA-Public Use
  Company Number: GB-IPSEN BIOPHARMACEUTICALS, INC.-2014-4025

PATIENT
  Age: 4 Year
  Sex: Female
  Weight: 10.3 kg

DRUGS (4)
  1. INCRELEX [Suspect]
     Active Substance: MECASERMIN
     Indication: PRODUCT USED FOR UNKNOWN INDICATION
     Route: 058
     Dates: end: 2013
  2. INCRELEX [Suspect]
     Active Substance: MECASERMIN
     Route: 058
     Dates: start: 20140522
  3. INCRELEX [Suspect]
     Active Substance: MECASERMIN
     Route: 058
     Dates: start: 2014, end: 201405
  4. INCRELEX [Suspect]
     Active Substance: MECASERMIN
     Route: 058
     Dates: start: 2014, end: 2014

REACTIONS (7)
  - Somnolence [Unknown]
  - Oral herpes [Recovered/Resolved]
  - Drug dose omission [Unknown]
  - Feeding disorder [Unknown]
  - Decreased appetite [Not Recovered/Not Resolved]
  - Hypoglycaemia [Unknown]
  - Malaise [Unknown]

NARRATIVE: CASE EVENT DATE: 20140322
